FAERS Safety Report 6354110-2 (Version None)
Quarter: 2009Q3

REPORT INFORMATION
  Report Type: 
  Country: None (occurrence: None)
  Receive Date: 20090908
  Receipt Date: 20090828
  Transmission Date: 20100115
  Serious: Yes (Death)
  Sender: FDA-Public Use
  Company Number: 1-19653841

PATIENT
  Sex: Male

DRUGS (7)
  1. FENTANYL TRANSDERMAL SYSTEM [Suspect]
     Indication: DYSPHAGIA
     Dosage: 75 MCG/HR, ONCE, TRANSDERMAL
     Route: 062
     Dates: start: 20090823, end: 20090824
  2. FENTANYL TRANSDERMAL SYSTEM [Suspect]
     Indication: PAIN
     Dosage: 75 MCG/HR, ONCE, TRANSDERMAL
     Route: 062
     Dates: start: 20090823, end: 20090824
  3. FENTANYL TRANSDERMAL SYSTEM [Suspect]
     Indication: DYSPHAGIA
     Dosage: TRANSDERMAL
     Route: 062
     Dates: start: 20090824, end: 20090826
  4. FENTANYL TRANSDERMAL SYSTEM [Suspect]
     Indication: PAIN
     Dosage: TRANSDERMAL
     Route: 062
     Dates: start: 20090824, end: 20090826
  5. MORPHINE SULFATE [Concomitant]
  6. ATIVAN [Concomitant]
  7. OTHER UNKNOWN MEDICATIONS [Concomitant]

REACTIONS (4)
  - APPLICATION SITE ERYTHEMA [None]
  - APPLICATION SITE PRURITUS [None]
  - APPLICATION SITE RASH [None]
  - PRODUCT SUBSTITUTION ISSUE [None]
